FAERS Safety Report 22132655 (Version 2)
Quarter: 2023Q1

REPORT INFORMATION
  Report Type: Spontaneous
  Country: US (occurrence: US)
  Receive Date: 20230323
  Receipt Date: 20230329
  Transmission Date: 20230418
  Serious: Yes (Other)
  Sender: FDA-Public Use
  Company Number: US-BoehringerIngelheim-2023-BI-226220

PATIENT
  Age: 67 Year
  Sex: Female

DRUGS (3)
  1. STIOLTO RESPIMAT [Suspect]
     Active Substance: OLODATEROL HYDROCHLORIDE\TIOTROPIUM BROMIDE MONOHYDRATE
     Indication: Chronic obstructive pulmonary disease
     Dosage: 2 PUFFS
  2. SPIRIVA RESPIMAT [Suspect]
     Active Substance: TIOTROPIUM BROMIDE
     Indication: Chronic obstructive pulmonary disease
  3. ALBUTEROL [Concomitant]
     Active Substance: ALBUTEROL
     Indication: Product used for unknown indication

REACTIONS (10)
  - Lung neoplasm malignant [Recovered/Resolved]
  - Dependence on oxygen therapy [Not Recovered/Not Resolved]
  - Arthralgia [Recovering/Resolving]
  - Upper limb fracture [Recovering/Resolving]
  - Fall [Unknown]
  - Cataract [Not Recovered/Not Resolved]
  - Urticaria [Unknown]
  - Dyspnoea [Unknown]
  - Clumsiness [Unknown]
  - Drug ineffective [Unknown]

NARRATIVE: CASE EVENT DATE: 20220501
